FAERS Safety Report 7813498-3 (Version None)
Quarter: 2011Q4

REPORT INFORMATION
  Report Type: 
  Country: None (occurrence: None)
  Receive Date: 20111014
  Receipt Date: 20111005
  Transmission Date: 20120403
  Serious: No
  Sender: FDA-Public Use
  Company Number: US-BIOGENIDEC-2011BI038185

PATIENT
  Sex: Female

DRUGS (4)
  1. TYSABRI [Suspect]
     Indication: MULTIPLE SCLEROSIS
     Route: 042
     Dates: start: 20090615
  2. XANAX [Concomitant]
  3. SOLU-MEDROL [Concomitant]
  4. TYSABRI [Suspect]
     Route: 042
     Dates: start: 20070514, end: 20070514

REACTIONS (3)
  - NERVOUSNESS [None]
  - FEAR [None]
  - HEMIPARESIS [None]
